FAERS Safety Report 9216373 (Version 2)
Quarter: 2013Q2

REPORT INFORMATION
  Report Type: Spontaneous
  Country: US (occurrence: None)
  Receive Date: 20130402
  Receipt Date: 20130516
  Transmission Date: 20140414
  Serious: Yes (Other)
  Sender: FDA-Public Use
  Company Number: ACO_35036_2013

PATIENT
  Age: 49 Year
  Sex: Male
  Weight: 88.4 kg

DRUGS (6)
  1. AMPYRA [Suspect]
     Indication: GAIT DISTURBANCE
     Route: 048
     Dates: start: 20130224, end: 20130225
  2. FLOMAX (TAMSULOSIN HYDROCHLORIDE) [Concomitant]
  3. NALTREXONE HYDROCHLORIDE (NALTREXONE HYDROCHLORIDE) [Concomitant]
  4. ZOLOFT (SERTRALINE HYDROCHLORIDE) [Concomitant]
  5. BACLOFEN (BACLOFEN) [Concomitant]
  6. CRANBERRY (CRANBERRY) [Concomitant]

REACTIONS (3)
  - Convulsion [None]
  - Urinary tract infection [None]
  - Light chain analysis abnormal [None]
